FAERS Safety Report 9678482 (Version 2)
Quarter: 2014Q2

REPORT INFORMATION
  Report Type: Report from Study
  Country: GB (occurrence: GB)
  Receive Date: 20131108
  Receipt Date: 20140522
  Transmission Date: 20141212
  Serious: Yes (Hospitalization)
  Sender: FDA-Public Use
  Company Number: GB-ROCHE-1300242

PATIENT
  Sex: Female

DRUGS (12)
  1. RANIBIZUMAB [Suspect]
     Indication: PRODUCT USED FOR UNKNOWN INDICATION
     Route: 050
     Dates: start: 20110722
  2. RANIBIZUMAB [Suspect]
     Route: 050
     Dates: start: 20130823
  3. RANIBIZUMAB [Suspect]
     Route: 050
     Dates: start: 20131011
  4. AMOXICILLIN [Concomitant]
     Route: 065
     Dates: start: 201308, end: 201309
  5. OMEPRAZOLE [Concomitant]
  6. TIOTROPIUM [Concomitant]
     Route: 065
  7. SERETIDE [Concomitant]
     Route: 065
  8. SIMVASTATIN [Concomitant]
  9. UNIPHYLLIN [Concomitant]
  10. FLUOXETINE [Concomitant]
  11. SENNA [Concomitant]
  12. LACTULOSE [Concomitant]
     Route: 065

REACTIONS (5)
  - Dizziness postural [Unknown]
  - Fall [Recovered/Resolved]
  - Chronic obstructive pulmonary disease [Unknown]
  - Osteoarthritis [Not Recovered/Not Resolved]
  - Loss of consciousness [Unknown]
